FAERS Safety Report 5808800-8 (Version None)
Quarter: 2008Q3

REPORT INFORMATION
  Report Type: 
  Country: None (occurrence: None)
  Receive Date: 20080714
  Receipt Date: 20080707
  Transmission Date: 20090109
  Serious: Yes (Hospitalization)
  Sender: FDA-Public Use
  Company Number: A0737374A

PATIENT
  Age: 72 Year
  Sex: Female

DRUGS (8)
  1. TYKERB [Suspect]
     Dosage: 5TAB PER DAY
     Route: 048
     Dates: start: 20080703
  2. XELODA [Suspect]
     Dosage: 3TAB TWICE PER DAY
     Route: 048
     Dates: start: 20080703
  3. FENTANYL TRANSDERMAL SYSTEM [Concomitant]
     Indication: PAIN
     Route: 062
  4. POTASSIUM CHLORIDE [Concomitant]
     Indication: DRUG USE FOR UNKNOWN INDICATION
  5. FUROSEMIDE [Concomitant]
     Indication: DRUG USE FOR UNKNOWN INDICATION
  6. TRAMADOL HCL [Concomitant]
     Indication: DRUG USE FOR UNKNOWN INDICATION
  7. WARFARIN SODIUM [Concomitant]
     Indication: DRUG USE FOR UNKNOWN INDICATION
  8. SENOKOT [Concomitant]
     Indication: DRUG USE FOR UNKNOWN INDICATION

REACTIONS (2)
  - DYSURIA [None]
  - VOMITING [None]
